FAERS Safety Report 6423606-7 (Version None)
Quarter: 2009Q4

REPORT INFORMATION
  Report Type: 
  Country: None (occurrence: None)
  Receive Date: 20091030
  Receipt Date: 20091030
  Transmission Date: 20100525
  Serious: Yes (Hospitalization)
  Sender: FDA-Public Use
  Company Number: None

PATIENT
  Age: 66 Year
  Sex: Female

DRUGS (1)
  1. RAMIPRIL [Suspect]
     Indication: BLOOD PRESSURE
     Dosage: 5MG 1 CAP DAILY PO
     Route: 048
     Dates: start: 20081217, end: 20090714

REACTIONS (2)
  - ARRHYTHMIA [None]
  - PALPITATIONS [None]
